FAERS Safety Report 11917004 (Version 1)
Quarter: 2016Q1

REPORT INFORMATION
  Report Type: Spontaneous
  Country: JP (occurrence: JP)
  Receive Date: 20160114
  Receipt Date: 20160114
  Transmission Date: 20160526
  Serious: Yes (Other)
  Sender: FDA-Public Use
  Company Number: GXJP2016JP000441

PATIENT
  Age: 79 Year
  Sex: Male

DRUGS (2)
  1. ETOPOSIDE INTRAVENOUS INFUSION [Suspect]
     Active Substance: ETOPOSIDE
     Indication: SMALL CELL LUNG CANCER
     Route: 065
  2. CARBOPLATIN INTRAVENOUS INFUSION [Suspect]
     Active Substance: CARBOPLATIN
     Indication: SMALL CELL LUNG CANCER
     Route: 065

REACTIONS (6)
  - Disseminated intravascular coagulation [Recovering/Resolving]
  - Fibrin degradation products increased [Unknown]
  - Platelet count decreased [Unknown]
  - Tumour lysis syndrome [Unknown]
  - Fibrin D dimer increased [Unknown]
  - Haemorrhagic diathesis [Unknown]
